FAERS Safety Report 9740449 (Version 1)
Quarter: 2013Q4

REPORT INFORMATION
  Report Type: Spontaneous
  Country: US (occurrence: US)
  Receive Date: 20131209
  Receipt Date: 20131209
  Transmission Date: 20140711
  Serious: No
  Sender: FDA-Public Use
  Company Number: US-BIOGENIDEC-2013BI089209

PATIENT
  Sex: Male

DRUGS (7)
  1. TECFIDERA [Suspect]
     Indication: MULTIPLE SCLEROSIS
     Route: 048
     Dates: start: 2013, end: 2013
  2. IBUPROFEN [Concomitant]
  3. AMPYRA [Concomitant]
  4. REQUIP [Concomitant]
  5. OXYBUTYNIN CL [Concomitant]
  6. BACLOFEN [Concomitant]
  7. TECFIDERA [Suspect]
     Indication: MULTIPLE SCLEROSIS
     Route: 048
     Dates: end: 201308

REACTIONS (7)
  - Influenza like illness [Recovered/Resolved]
  - Adverse event [Recovered/Resolved]
  - Gastric disorder [Unknown]
  - Flushing [Unknown]
  - Nausea [Recovered/Resolved]
  - Vomiting [Recovered/Resolved]
  - Abdominal discomfort [Recovered/Resolved]
